FAERS Safety Report 11522473 (Version 1)
Quarter: 2015Q3

REPORT INFORMATION
  Report Type: Spontaneous
  Country: IE (occurrence: IE)
  Receive Date: 20150918
  Receipt Date: 20150918
  Transmission Date: 20151125
  Serious: Yes (Other)
  Sender: FDA-Public Use
  Company Number: IE-LEO PHARMA-236997

PATIENT
  Sex: Male

DRUGS (1)
  1. PICATO [Suspect]
     Active Substance: INGENOL MEBUTATE
     Indication: PRODUCT USED FOR UNKNOWN INDICATION

REACTIONS (7)
  - Lacrimation increased [Unknown]
  - Application site paraesthesia [Unknown]
  - Application site reaction [Unknown]
  - Application site scab [Unknown]
  - Application site erythema [Unknown]
  - Application site dryness [Unknown]
  - Eye swelling [Unknown]
